FAERS Safety Report 17817808 (Version 2)
Quarter: 2020Q2

REPORT INFORMATION
  Report Type: Spontaneous
  Country: ES (occurrence: ES)
  Receive Date: 20200522
  Receipt Date: 20200612
  Transmission Date: 20200714
  Serious: Yes (Other)
  Sender: FDA-Public Use
  Company Number: NVSC2020ES140576

PATIENT
  Age: 3 Year
  Sex: Female
  Weight: 16.4 kg

DRUGS (2)
  1. REVOLADE [Suspect]
     Active Substance: ELTROMBOPAG
     Dosage: 62.5 MG, QD
     Route: 065
  2. REVOLADE [Suspect]
     Active Substance: ELTROMBOPAG
     Indication: IMMUNE THROMBOCYTOPENIA
     Dosage: UNK, QD
     Route: 065

REACTIONS (9)
  - Apathy [Unknown]
  - Vomiting [Unknown]
  - Decreased appetite [Unknown]
  - Ocular icterus [Unknown]
  - Abdominal pain [Unknown]
  - Pallor [Unknown]
  - Acute hepatic failure [Recovered/Resolved]
  - Asthenia [Unknown]
  - Thrombocytopenia [Recovering/Resolving]

NARRATIVE: CASE EVENT DATE: 20200421
